FAERS Safety Report 5570144-X (Version None)
Quarter: 2007Q4

REPORT INFORMATION
  Report Type: 
  Country: None (occurrence: None)
  Receive Date: 20071220
  Receipt Date: 20071211
  Transmission Date: 20080405
  Serious: Yes (Other)
  Sender: FDA-Public Use
  Company Number: US-PFIZER INC-2007105058

PATIENT
  Age: 21 Year
  Sex: Male

DRUGS (2)
  1. ZIPRASIDONE (CAPS) [Suspect]
  2. ARIPIPRAZOLE [Concomitant]
     Dosage: DAILY DOSE:30MG

REACTIONS (4)
  - ABNORMAL BEHAVIOUR [None]
  - CATATONIA [None]
  - COGWHEEL RIGIDITY [None]
  - PARKINSONIAN REST TREMOR [None]
